FAERS Safety Report 9903737 (Version 1)
Quarter: 2014Q1

REPORT INFORMATION
  Report Type: Spontaneous
  Country: US (occurrence: US)
  Receive Date: 20140218
  Receipt Date: 20140218
  Transmission Date: 20141002
  Serious: Yes (Other)
  Sender: FDA-Public Use
  Company Number: US-AMGEN-USASP2014010739

PATIENT
  Age: 87 Year
  Sex: Female

DRUGS (1)
  1. ENBREL [Suspect]
     Indication: PSORIATIC ARTHROPATHY
     Dosage: 50 MG, QWK
     Route: 065
     Dates: start: 20100801, end: 201401

REACTIONS (5)
  - Lip and/or oral cavity cancer [Not Recovered/Not Resolved]
  - Oral pain [Not Recovered/Not Resolved]
  - Gingival pain [Not Recovered/Not Resolved]
  - Eating disorder [Not Recovered/Not Resolved]
  - Skin papilloma [Recovered/Resolved]
